FAERS Safety Report 8298450-9 (Version None)
Quarter: 2012Q2

REPORT INFORMATION
  Report Type: 
  Country: None (occurrence: None)
  Receive Date: 20120419
  Receipt Date: 20120410
  Transmission Date: 20120825
  Serious: Yes (Other)
  Sender: FDA-Public Use
  Company Number: MX-SANOFI-AVENTIS-2012SA024850

PATIENT
  Age: 52 Year
  Sex: Male
  Weight: 72 kg

DRUGS (7)
  1. LANTUS [Suspect]
     Dosage: DOSE: 20 IU IN MORNING AND 10 IU AT NIGHT
     Route: 058
     Dates: start: 20111101
  2. AMARYL [Suspect]
     Indication: TYPE 2 DIABETES MELLITUS
     Route: 048
     Dates: start: 20100101, end: 20111101
  3. LANTUS [Suspect]
     Dosage: DOSE: 20 IU IN MORNING AND 10 IU AT NIGHT
     Route: 058
     Dates: start: 20110101, end: 20111101
  4. CLONAZEPAM [Concomitant]
     Indication: ANXIETY
     Route: 048
  5. LANTUS [Suspect]
     Indication: TYPE 2 DIABETES MELLITUS
     Dosage: DOSE: 20 IU IN MORNING AND 10 IU AT NIGHT
     Route: 058
     Dates: start: 20100101, end: 20110101
  6. TOPAMAX [Concomitant]
     Indication: ANXIETY
     Route: 048
  7. LANTUS [Suspect]
     Dosage: DOSE: 20 IU IN MORNING AND 10 IU AT NIGHT
     Route: 058
     Dates: start: 20110101, end: 20110101

REACTIONS (3)
  - WEIGHT DECREASED [None]
  - DRUG ADMINISTRATION ERROR [None]
  - HYPERGLYCAEMIA [None]
